FAERS Safety Report 7214483-5 (Version None)
Quarter: 2011Q1

REPORT INFORMATION
  Report Type: 
  Country: None (occurrence: None)
  Receive Date: 20110107
  Receipt Date: 20110104
  Transmission Date: 20110831
  Serious: No
  Sender: FDA-Public Use
  Company Number: US-TEVA-262183USA

PATIENT
  Sex: Female

DRUGS (1)
  1. COPAXONE [Suspect]
     Indication: MULTIPLE SCLEROSIS
     Route: 058

REACTIONS (6)
  - HYPOAESTHESIA [None]
  - MOTOR DYSFUNCTION [None]
  - FEELING HOT [None]
  - SPEECH DISORDER [None]
  - ANXIETY [None]
  - FATIGUE [None]
